FAERS Safety Report 10419793 (Version 2)
Quarter: 2014Q3

REPORT INFORMATION
  Report Type: Spontaneous
  Country: US (occurrence: US)
  Receive Date: 20140829
  Receipt Date: 20140910
  Transmission Date: 20150326
  Serious: Yes (Other)
  Sender: FDA-Public Use
  Company Number: US-LUNDBECK-DKLU1103015

PATIENT
  Sex: Female

DRUGS (5)
  1. SABRIL [Suspect]
     Active Substance: VIGABATRIN
  2. SABRIL [Suspect]
     Active Substance: VIGABATRIN
  3. SABRIL [Suspect]
     Active Substance: VIGABATRIN
  4. SABRIL [Suspect]
     Active Substance: VIGABATRIN
     Indication: INFANTILE SPASMS
     Dates: start: 20130614
  5. SABRIL [Suspect]
     Active Substance: VIGABATRIN
     Dates: start: 20130614

REACTIONS (1)
  - Drug withdrawal convulsions [Unknown]
